FAERS Safety Report 25566913 (Version 2)
Quarter: 2025Q3

REPORT INFORMATION
  Report Type: Spontaneous
  Country: US (occurrence: US)
  Receive Date: 20250716
  Receipt Date: 20250911
  Transmission Date: 20251020
  Serious: No
  Sender: BAYER HEALTHCARE PHARMACEUTICALS INC.
  Company Number: US-BAYER-2025A092906

PATIENT
  Age: 58 Year
  Sex: Female

DRUGS (1)
  1. ESTRADIOL [Suspect]
     Active Substance: ESTRADIOL
     Dosage: 1 DF, OW
     Route: 062

REACTIONS (4)
  - Device adhesion issue [None]
  - Product quality issue [None]
  - Incorrect dose administered by device [None]
  - Product dose omission issue [None]

NARRATIVE: CASE EVENT DATE: 20250701
